FAERS Safety Report 6731098-3 (Version None)
Quarter: 2010Q2

REPORT INFORMATION
  Report Type: 
  Country: None (occurrence: None)
  Receive Date: 20100518
  Receipt Date: 20100511
  Transmission Date: 20101027
  Serious: Yes (Life-Threatening, Other)
  Sender: FDA-Public Use
  Company Number: JP-ELI_LILLY_AND_COMPANY-JP200911002974

PATIENT
  Sex: Male
  Weight: 50 kg

DRUGS (6)
  1. ALIMTA [Suspect]
     Indication: NON-SMALL CELL LUNG CANCER STAGE IV
     Dosage: 720 MG, DAILY (1/D)
     Route: 042
     Dates: start: 20090925, end: 20090925
  2. PANVITAN [Concomitant]
     Dosage: 1 G, DAILY (1/D)
     Route: 048
     Dates: start: 20090917, end: 20091015
  3. HYDROXOCOBALAMIN ACETATE [Concomitant]
     Dosage: 1 MG, DAILY (1/D)
     Route: 030
     Dates: start: 20090918
  4. DECADRON [Concomitant]
     Indication: METASTASES TO CENTRAL NERVOUS SYSTEM
     Dosage: 2 MG, DAILY (1/D)
     Route: 048
     Dates: start: 20090813
  5. DEPAKENE [Concomitant]
     Indication: METASTASES TO CENTRAL NERVOUS SYSTEM
     Dosage: 200 MG, 3/D
     Route: 048
     Dates: start: 20090814
  6. DEXART [Concomitant]
     Indication: PROPHYLAXIS
     Dosage: 8 MG, DAILY (1/D)
     Route: 042
     Dates: start: 20090925, end: 20090925

REACTIONS (5)
  - BLOOD SODIUM DECREASED [None]
  - PLATELET COUNT DECREASED [None]
  - PNEUMONIA [None]
  - RESPIRATORY FAILURE [None]
  - SEPSIS [None]
